FAERS Safety Report 5920778-5 (Version None)
Quarter: 2008Q4

REPORT INFORMATION
  Report Type: 
  Country: None (occurrence: None)
  Receive Date: 20081016
  Receipt Date: 20080905
  Transmission Date: 20090506
  Serious: Yes (Death, Hospitalization, Other)
  Sender: FDA-Public Use
  Company Number: US-ROCHE-585107

PATIENT
  Sex: Female

DRUGS (5)
  1. MYCOPHENOLATE MOFETIL [Suspect]
     Indication: RENAL TRANSPLANT
     Route: 048
     Dates: start: 20000905, end: 20001121
  2. ERL080A [Suspect]
     Indication: RENAL TRANSPLANT
     Dosage: DRUG REPORTED: BLINDED ER080A
     Route: 048
     Dates: start: 20000905, end: 20001121
  3. NEORAL [Suspect]
     Indication: DRUG USE FOR UNKNOWN INDICATION
     Route: 065
  4. PREDNISONE [Suspect]
     Indication: DRUG USE FOR UNKNOWN INDICATION
     Route: 065
  5. CIPRO [Concomitant]

REACTIONS (5)
  - ABDOMINAL PAIN LOWER [None]
  - BLADDER NEOPLASM [None]
  - CHROMATURIA [None]
  - LYMPHANGIOSIS CARCINOMATOSA [None]
  - RED BLOOD CELLS URINE [None]
